FAERS Safety Report 23240244 (Version 2)
Quarter: 2023Q4

REPORT INFORMATION
  Report Type: Spontaneous
  Country: US (occurrence: US)
  Receive Date: 20231129
  Receipt Date: 20231221
  Transmission Date: 20240110
  Serious: Yes (Other)
  Sender: FDA-Public Use
  Company Number: US-002147023-NVSC2023US253606

PATIENT
  Sex: Male

DRUGS (1)
  1. PLUVICTO [Suspect]
     Active Substance: LUTETIUM LU-177 VIPIVOTIDE TETRAXETAN
     Indication: Hormone-refractory prostate cancer
     Dosage: 200 MBQ (MECABEQUERAL)
     Route: 042
     Dates: start: 20231114, end: 20231114

REACTIONS (3)
  - Malignant neoplasm progression [Unknown]
  - Hormone-refractory prostate cancer [Unknown]
  - Vision blurred [Unknown]

NARRATIVE: CASE EVENT DATE: 20231118
